FAERS Safety Report 7751023-6 (Version None)
Quarter: 2011Q3

REPORT INFORMATION
  Report Type: 
  Country: None (occurrence: None)
  Receive Date: 20110914
  Receipt Date: 20110907
  Transmission Date: 20111222
  Serious: Yes (Hospitalization, Other)
  Sender: FDA-Public Use
  Company Number: PHHY2011US64128

PATIENT
  Sex: Female
  Weight: 75 kg

DRUGS (11)
  1. TEGRETOL-XR [Suspect]
     Indication: CONVULSION
     Dosage: 200 MG, TID
  2. REBIF [Suspect]
     Indication: MULTIPLE SCLEROSIS
     Dosage: 44 UG, TIW
     Route: 058
     Dates: start: 20100915, end: 20101001
  3. ZONISAMIDE [Concomitant]
     Indication: MIGRAINE
     Dosage: UNK UKN, UNK
  4. TOPAMAX [Suspect]
     Indication: MIGRAINE
     Dosage: 350 MG, (150 MG AM, 200 MG PM)
     Route: 048
  5. INDERAL LA [Concomitant]
     Dosage: 80 MG, UNK
  6. AMITRIPTYLINE HCL [Concomitant]
     Dosage: 25 MG, UNK
     Route: 048
     Dates: start: 20101014, end: 20101021
  7. TEGRETOL-XR [Suspect]
     Dosage: 500 MG PER DAY
  8. VITAMIN D [Concomitant]
     Indication: VITAMIN D DEFICIENCY
     Dosage: 15000 DAILY
  9. CARDIZEM [Concomitant]
     Indication: MIGRAINE
     Dosage: 240 MG, DAILY
  10. CYCLOBENAZPRINE [Concomitant]
     Dosage: 10 MG, BEDTIME
  11. ACETAMINOPHEN [Concomitant]
     Dosage: UNK UKN, PRN
     Route: 048

REACTIONS (8)
  - MULTIPLE SCLEROSIS [None]
  - LACERATION [None]
  - CRANIOCEREBRAL INJURY [None]
  - CONCUSSION [None]
  - LOSS OF CONSCIOUSNESS [None]
  - ENCEPHALOPATHY [None]
  - FALL [None]
  - RADIUS FRACTURE [None]
